FAERS Safety Report 9445072 (Version 2)
Quarter: 2013Q3

REPORT INFORMATION
  Report Type: Report from Study
  Country: IT (occurrence: IT)
  Receive Date: 20130807
  Receipt Date: 20130823
  Transmission Date: 20140515
  Serious: Yes (Hospitalization)
  Sender: FDA-Public Use
  Company Number: PHHO2012IT008220

PATIENT
  Age: 64 Year
  Sex: Female
  Weight: 64 kg

DRUGS (5)
  1. AMN107 [Suspect]
     Indication: CHRONIC MYELOID LEUKAEMIA
     Dosage: 150 MG, BID
     Route: 048
     Dates: start: 20080827, end: 20120529
  2. ASA [Concomitant]
     Dosage: 100 MG, UNK
     Dates: start: 20110320
  3. RAMIPRIL [Concomitant]
     Dosage: 2.5 MG, UNK
     Dates: start: 20110320
  4. BISOPROLOL [Concomitant]
     Dosage: 2.5 MG, UNK
     Dates: start: 20110320
  5. ROSUVASTATIN [Concomitant]
     Dosage: 20 MG, UNK
     Dates: start: 20110320

REACTIONS (2)
  - Tachycardia [Recovered/Resolved]
  - Angina pectoris [Recovered/Resolved]
